FAERS Safety Report 14130801 (Version 2)
Quarter: 2018Q1

REPORT INFORMATION
  Report Type: Report from Study
  Country: US (occurrence: US)
  Receive Date: 20171026
  Receipt Date: 20180123
  Transmission Date: 20180508
  Serious: No
  Sender: FDA-Public Use
  Company Number: US-AMGEN-USASL2017148972

PATIENT
  Sex: Female

DRUGS (1)
  1. REPATHA [Suspect]
     Active Substance: EVOLOCUMAB
     Indication: HYPERCHOLESTEROLAEMIA
     Dosage: UNK , Q2WK
     Route: 065
     Dates: end: 2016

REACTIONS (4)
  - Nausea [Unknown]
  - Muscle spasms [Unknown]
  - Drug effect incomplete [Unknown]
  - Drug intolerance [Unknown]
